FAERS Safety Report 24259434 (Version 1)
Quarter: 2024Q3

REPORT INFORMATION
  Report Type: Spontaneous
  Country: US (occurrence: None)
  Receive Date: 20240828
  Receipt Date: 20240828
  Transmission Date: 20241016
  Serious: Yes (Hospitalization)
  Sender: Public
  Company Number: None

PATIENT
  Age: 36 Year
  Sex: Female
  Weight: 117.2 kg

DRUGS (1)
  1. PEMBROLIZUMAB [Suspect]
     Active Substance: PEMBROLIZUMAB
     Dates: end: 20240716

REACTIONS (9)
  - Dyspnoea [None]
  - Lethargy [None]
  - Nausea [None]
  - Pericardial effusion [None]
  - Procalcitonin increased [None]
  - Blood lactic acid increased [None]
  - Blood thyroid stimulating hormone increased [None]
  - Adrenal insufficiency [None]
  - Hypotension [None]

NARRATIVE: CASE EVENT DATE: 20240818
